FAERS Safety Report 9209255 (Version 1)
Quarter: 2013Q2

REPORT INFORMATION
  Report Type: Spontaneous
  Country: GB (occurrence: GB)
  Receive Date: 20130404
  Receipt Date: 20130404
  Transmission Date: 20140414
  Serious: Yes (Hospitalization)
  Sender: FDA-Public Use
  Company Number: GB-BANPHARM-20131108

PATIENT
  Age: 55 Year
  Sex: Female

DRUGS (7)
  1. IBUPROFEN UNKNOWN PRODUCT [Suspect]
     Indication: ARTHRALGIA
     Route: 048
     Dates: start: 200312, end: 200401
  2. TENOFOVIR DISOPROXIL FUMARATE [Suspect]
     Route: 048
     Dates: start: 200302, end: 200401
  3. ABACAVIR [Concomitant]
     Route: 048
     Dates: start: 200302, end: 200401
  4. ATENOLOL [Concomitant]
     Route: 048
  5. BACTRIM [Concomitant]
     Route: 048
     Dates: end: 200401
  6. FLUCONAZOLE [Concomitant]
     Route: 048
     Dates: end: 200401
  7. KALETRA [Concomitant]
     Route: 048
     Dates: start: 200302, end: 200401

REACTIONS (3)
  - Renal failure acute [Recovering/Resolving]
  - Metabolic acidosis [Recovering/Resolving]
  - Renal tubular acidosis [Recovering/Resolving]
